FAERS Safety Report 8524288-0 (Version None)
Quarter: 2012Q3

REPORT INFORMATION
  Report Type: 
  Country: None (occurrence: None)
  Receive Date: 20120716
  Receipt Date: 20120716
  Transmission Date: 20120928
  Serious: Yes (Other)
  Sender: FDA-Public Use
  Company Number: None

PATIENT
  Sex: Female

DRUGS (2)
  1. PROLIXIN [Suspect]
     Indication: DELUSION
     Dosage: 50 MG, ONCE EVERY 4 WEEKS, IM
     Route: 030
  2. SEROQUEL [Suspect]
     Indication: DELUSION
     Dosage: 400 MG, ONCE IN THE MORNING, PO
     Route: 048

REACTIONS (2)
  - DELUSION [None]
  - AGGRESSION [None]
